FAERS Safety Report 13256766 (Version 2)
Quarter: 2017Q1

REPORT INFORMATION
  Report Type: Report from Study
  Country: FR (occurrence: FR)
  Receive Date: 20170221
  Receipt Date: 20170224
  Transmission Date: 20170428
  Serious: Yes (Death, Other)
  Sender: FDA-Public Use
  Company Number: FR-TEVA-741989ISR

PATIENT

DRUGS (3)
  1. MTX [Concomitant]
     Active Substance: METHOTREXATE SODIUM
     Route: 065
  2. ARSENIC TRIOXIDE [Suspect]
     Active Substance: ARSENIC TRIOXIDE
     Route: 065
  3. ATRA [Suspect]
     Active Substance: TRETINOIN
     Route: 065

REACTIONS (6)
  - Prostate cancer [Fatal]
  - Leukaemia [Unknown]
  - Sepsis [Fatal]
  - Haemorrhage [Fatal]
  - Multiple organ dysfunction syndrome [Fatal]
  - Leukaemia recurrent [Unknown]
